FAERS Safety Report 6501800-4 (Version None)
Quarter: 2009Q4

REPORT INFORMATION
  Report Type: 
  Country: None (occurrence: None)
  Receive Date: 20091216
  Receipt Date: 20090909
  Transmission Date: 20100525
  Serious: No
  Sender: FDA-Public Use
  Company Number: US-AMGEN-KDL363636

PATIENT
  Sex: Male

DRUGS (14)
  1. ARANESP [Suspect]
     Indication: RENAL FAILURE CHRONIC
  2. MISOPROSTOL [Concomitant]
  3. FERROUS SULFATE TAB [Concomitant]
  4. FINASTERIDE [Concomitant]
  5. AMLODIPINE [Concomitant]
  6. LANTUS [Concomitant]
  7. LIPITOR [Concomitant]
  8. CALCITRIOL [Concomitant]
  9. SOTALOL HCL [Concomitant]
  10. DOXAZOSIN MESYLATE [Concomitant]
  11. TIMOLOL [Concomitant]
  12. ALPHAGAN [Concomitant]
  13. XALATAN [Concomitant]
  14. NOVOLOG [Concomitant]

REACTIONS (1)
  - VISUAL ACUITY REDUCED [None]
